FAERS Safety Report 20336280 (Version 1)
Quarter: 2022Q1

REPORT INFORMATION
  Report Type: Spontaneous
  Country: US (occurrence: None)
  Receive Date: 20220114
  Receipt Date: 20220114
  Transmission Date: 20220423
  Serious: Yes (Death)
  Sender: FDA-Public Use
  Company Number: None

PATIENT
  Sex: Male

DRUGS (1)
  1. ABIRATERONE ACETATE [Suspect]
     Active Substance: ABIRATERONE ACETATE
     Indication: Prostate cancer
     Dosage: TAKE 4 TABLETS (1,000 MG) BY MOUTH DAILY ON AN EMPTY STOMACH AT LEAST ONE HOUR BEFORE OR TWO HOURS A
     Route: 048
     Dates: start: 20210720

REACTIONS (1)
  - Death [None]
